FAERS Safety Report 6273563-1 (Version None)
Quarter: 2009Q3

REPORT INFORMATION
  Report Type: 
  Country: None (occurrence: None)
  Receive Date: 20090720
  Receipt Date: 20090707
  Transmission Date: 20100115
  Serious: Yes (Other)
  Sender: FDA-Public Use
  Company Number: US-JNJFOC-20090404613

PATIENT
  Sex: Female
  Weight: 77.11 kg

DRUGS (8)
  1. REMICADE [Suspect]
     Route: 042
  2. REMICADE [Suspect]
     Route: 042
  3. REMICADE [Suspect]
     Route: 042
  4. REMICADE [Suspect]
     Indication: COLITIS ULCERATIVE
     Route: 042
  5. ASACOL [Concomitant]
     Indication: COLITIS ULCERATIVE
     Dosage: ^10 YEARS^
  6. LISINOPRIL [Concomitant]
     Indication: HYPERTENSION
     Dosage: ^2 YEARS^
  7. SYNTHROID [Concomitant]
     Indication: HYPOTHYROIDISM
     Dosage: ^1 YEAR^
  8. MELOXICAM [Concomitant]

REACTIONS (4)
  - ARTHRALGIA [None]
  - CARDIAC MURMUR [None]
  - MOUTH ULCERATION [None]
  - RAYNAUD'S PHENOMENON [None]
